FAERS Safety Report 25032627 (Version 1)
Quarter: 2025Q1

REPORT INFORMATION
  Report Type: Spontaneous
  Country: US (occurrence: US)
  Receive Date: 20250303
  Receipt Date: 20250303
  Transmission Date: 20250409
  Serious: No
  Sender: AMGEN
  Company Number: US-AMGEN-USASP2025038525

PATIENT
  Age: 10 Year
  Sex: Female

DRUGS (1)
  1. ENBREL [Suspect]
     Active Substance: ETANERCEPT
     Indication: Juvenile idiopathic arthritis
     Dosage: 50 MILLIGRAM, QWK
     Route: 058
     Dates: start: 20250214

REACTIONS (4)
  - Device difficult to use [Unknown]
  - Accidental exposure to product [Unknown]
  - Feeling abnormal [Unknown]
  - Wrong technique in product usage process [Unknown]

NARRATIVE: CASE EVENT DATE: 20250221
